FAERS Safety Report 7962386-0 (Version None)
Quarter: 2011Q4

REPORT INFORMATION
  Report Type: 
  Country: None (occurrence: None)
  Receive Date: 20111207
  Receipt Date: 20111130
  Transmission Date: 20120403
  Serious: Yes (Other)
  Sender: FDA-Public Use
  Company Number: US-RB-030914-11

PATIENT
  Age: 20 Year
  Sex: Male

DRUGS (1)
  1. DELSYM CHILDREN'S GRAPE COUGH SYRUP [Suspect]
     Indication: PRODUCT USED FOR UNKNOWN INDICATION
     Dosage: 11/28 DRANK 1/2 BOTTLE, MAYBE MORE
     Route: 048
     Dates: start: 20111128

REACTIONS (4)
  - HYPERHIDROSIS [None]
  - ACCIDENTAL OVERDOSE [None]
  - HALLUCINATION [None]
  - EUPHORIC MOOD [None]
